FAERS Safety Report 23622011 (Version 1)
Quarter: 2024Q1

REPORT INFORMATION
  Report Type: Spontaneous
  Country: US (occurrence: US)
  Receive Date: 20240312
  Receipt Date: 20240312
  Transmission Date: 20240410
  Serious: Yes (Life-Threatening, Hospitalization)
  Sender: FDA-Public Use
  Company Number: US-MYLANLABS-2024M1022865

PATIENT
  Age: 31 Year
  Sex: Male

DRUGS (4)
  1. FENTANYL [Suspect]
     Active Substance: FENTANYL\FENTANYL CITRATE
     Indication: Agitation
     Dosage: UNK, INJECTED 1:1 MIXTURES OF XYLAZINE AND FENTANYL INTRAVENOUSLY REGULARLY
     Route: 042
  2. FENTANYL [Suspect]
     Active Substance: FENTANYL\FENTANYL CITRATE
     Indication: Mechanical ventilation
     Dosage: UNK, INFUSION
     Route: 065
  3. PROPOFOL [Suspect]
     Active Substance: PROPOFOL
     Indication: Agitation
     Dosage: UNK
     Route: 065
  4. PROPOFOL [Suspect]
     Active Substance: PROPOFOL
     Indication: Mechanical ventilation

REACTIONS (6)
  - Respiratory failure [Recovered/Resolved]
  - Carbon monoxide poisoning [Recovering/Resolving]
  - Drug ineffective for unapproved indication [Unknown]
  - Drug abuse [Recovering/Resolving]
  - Overdose [Recovering/Resolving]
  - Off label use [Unknown]
